FAERS Safety Report 9270423 (Version 3)
Quarter: 2017Q4

REPORT INFORMATION
  Report Type: Spontaneous
  Country: US (occurrence: US)
  Receive Date: 20130503
  Receipt Date: 20171210
  Transmission Date: 20180321
  Serious: Yes (Other)
  Sender: FDA-Public Use
  Company Number: US-009507513-1304USA017118

PATIENT
  Sex: Male
  Weight: 79.82 kg

DRUGS (1)
  1. PROPECIA [Suspect]
     Active Substance: FINASTERIDE
     Indication: ALOPECIA
     Dosage: 1 MG, UNK
     Route: 048
     Dates: start: 2007, end: 200803

REACTIONS (19)
  - Palpitations [Unknown]
  - Animal bite [Unknown]
  - Tendonitis [Unknown]
  - Herpes simplex [Unknown]
  - Sexual dysfunction [Not Recovered/Not Resolved]
  - Papilloma [Unknown]
  - Anxiety [Unknown]
  - Acute sinusitis [Unknown]
  - Nephrolithiasis [Unknown]
  - Exposure to communicable disease [Recovered/Resolved]
  - Agitation [Unknown]
  - Erectile dysfunction [Not Recovered/Not Resolved]
  - Pain in extremity [Unknown]
  - Laceration [Unknown]
  - Arthritis [Unknown]
  - Eye disorder [Unknown]
  - Poor quality sleep [Unknown]
  - Bronchitis [Unknown]
  - Nasal polyps [Unknown]

NARRATIVE: CASE EVENT DATE: 2008
